FAERS Safety Report 7919337-4 (Version None)
Quarter: 2011Q4

REPORT INFORMATION
  Report Type: 
  Country: None (occurrence: None)
  Receive Date: 20111117
  Receipt Date: 20111107
  Transmission Date: 20120403
  Serious: Yes (Other)
  Sender: FDA-Public Use
  Company Number: CA-JNJFOC-20111104466

PATIENT
  Sex: Female
  Weight: 50 kg

DRUGS (3)
  1. IMURAN [Concomitant]
  2. REMICADE [Suspect]
     Indication: CROHN'S DISEASE
     Route: 042
     Dates: start: 20111006
  3. REMICADE [Suspect]
     Dosage: 2 TOTAL INFUSIONS
     Route: 042
     Dates: start: 20110101

REACTIONS (1)
  - URETERAL STENT INSERTION [None]
